FAERS Safety Report 6347839-3 (Version None)
Quarter: 2009Q3

REPORT INFORMATION
  Report Type: 
  Country: None (occurrence: None)
  Receive Date: 20090910
  Receipt Date: 20090831
  Transmission Date: 20100115
  Serious: Yes (Hospitalization)
  Sender: FDA-Public Use
  Company Number: B0592301A

PATIENT
  Sex: Female

DRUGS (3)
  1. FORTUM [Suspect]
     Indication: MASTOIDITIS
     Dosage: .7G TWICE PER DAY
     Route: 042
     Dates: start: 20090729, end: 20090817
  2. NASIVIN [Concomitant]
  3. PARALEN [Concomitant]

REACTIONS (4)
  - DRUG ERUPTION [None]
  - LEUKOPENIA [None]
  - PYREXIA [None]
  - RASH GENERALISED [None]
